FAERS Safety Report 25081147 (Version 1)
Quarter: 2025Q1

REPORT INFORMATION
  Report Type: Spontaneous
  Country: US (occurrence: US)
  Receive Date: 20250315
  Receipt Date: 20250315
  Transmission Date: 20250409
  Serious: No
  Sender: KINDEVA DRUG DELIVERY L.P.
  Company Number: US-Kindeva Drug Delivery L.P.-2172927

PATIENT
  Age: 67 Year
  Sex: Male

DRUGS (1)
  1. ALBUTEROL SULFATE [Suspect]
     Active Substance: ALBUTEROL SULFATE
     Indication: Chronic obstructive pulmonary disease
     Dates: start: 20250306

REACTIONS (4)
  - Device leakage [Unknown]
  - Heart rate increased [Unknown]
  - Hypertension [Unknown]
  - Product odour abnormal [Unknown]
